FAERS Safety Report 9339213 (Version 2)
Quarter: 2014Q1

REPORT INFORMATION
  Report Type: Spontaneous
  Country: AT (occurrence: AT)
  Receive Date: 20130610
  Receipt Date: 20140213
  Transmission Date: 20141002
  Serious: Yes (Other)
  Sender: FDA-Public Use
  Company Number: AT-PFIZER INC-2013170816

PATIENT
  Age: 74 Year
  Sex: Male

DRUGS (18)
  1. LYRICA [Suspect]
     Dosage: 75 MG, 1X/DAY
     Dates: start: 20130124, end: 20130131
  2. LYRICA [Suspect]
     Dosage: 150 MG, 1X/DAY
     Dates: start: 20130201, end: 20130218
  3. LYRICA [Suspect]
     Dosage: 75 MG, 1X/DAY
     Dates: start: 20130219
  4. ABILIFY [Suspect]
     Indication: MOOD ALTERED
     Dosage: 5 MG, 1X/DAY
     Dates: start: 20130327, end: 20130328
  5. CYMBALTA [Suspect]
     Dosage: 30 MG, 1X/DAY
     Dates: start: 20130218, end: 20130218
  6. CYMBALTA [Suspect]
     Dosage: 60 MG, 1X/DAY
     Dates: start: 20130219
  7. WELLBUTRIN [Suspect]
     Dosage: 150 MG, 1X/DAY
     Dates: start: 20130212, end: 20130327
  8. WELLBUTRIN [Suspect]
     Dosage: 300 MG, 1X/DAY
     Dates: start: 20130328
  9. RIVOTRIL [Concomitant]
     Dosage: 1.5 MG, 1X/DAY
     Dates: start: 20130107, end: 20130108
  10. RIVOTRIL [Concomitant]
     Dosage: 1.25 MG, 1X/DAY
     Dates: start: 20130109, end: 20130116
  11. RIVOTRIL [Concomitant]
     Dosage: 1 MG, 1X/DAY
     Dates: start: 20130117, end: 20130120
  12. RIVOTRIL [Concomitant]
     Dosage: 1.5 MG, 1X/DAY
     Dates: start: 20130121, end: 20130207
  13. RIVOTRIL [Concomitant]
     Dosage: 1.25 MG, 1X/DAY
     Dates: start: 20130208, end: 20130210
  14. RIVOTRIL [Concomitant]
     Dosage: 1.50 MG, 1X/DAY
     Dates: start: 20130211, end: 20130227
  15. RIVOTRIL [Concomitant]
     Dosage: 1 MG, 1X/DAY
     Dates: start: 20130218, end: 20130305
  16. RIVOTRIL [Concomitant]
     Dosage: 0.5 MG, 1X/DAY
     Dates: start: 20130306
  17. ALNA RETARD [Concomitant]
     Dosage: 0.4 MG, 1X/DAY
     Dates: start: 20130201
  18. PANTOLOC [Concomitant]
     Dosage: 40 MG, UNK
     Dates: start: 20130308

REACTIONS (4)
  - Resting tremor [Recovered/Resolved]
  - Intention tremor [Recovered/Resolved]
  - Head titubation [Recovered/Resolved]
  - Paraesthesia [Recovered/Resolved]
